FAERS Safety Report 25228335 (Version 1)
Quarter: 2025Q2

REPORT INFORMATION
  Report Type: Spontaneous
  Country: PT (occurrence: PT)
  Receive Date: 20250423
  Receipt Date: 20250423
  Transmission Date: 20250716
  Serious: Yes (Other)
  Sender: EMD SERONO INC
  Company Number: None

PATIENT
  Age: 80 Year
  Sex: Female
  Weight: 59 kg

DRUGS (5)
  1. TEPMETKO [Suspect]
     Active Substance: TEPOTINIB HYDROCHLORIDE
     Indication: Non-small cell lung cancer stage IV
  2. LEVOTHYROXINE SODIUM [Concomitant]
     Active Substance: LEVOTHYROXINE SODIUM
     Indication: Product used for unknown indication
  3. SITAGLIPTIN [Concomitant]
     Active Substance: SITAGLIPTIN
     Indication: Product used for unknown indication
  4. OMEPRAZOLE [Concomitant]
     Active Substance: OMEPRAZOLE
     Indication: Product used for unknown indication
  5. EMPAGLIFLOZIN\METFORMIN HYDROCHLORIDE [Concomitant]
     Active Substance: EMPAGLIFLOZIN\METFORMIN HYDROCHLORIDE
     Indication: Product used for unknown indication

REACTIONS (1)
  - Sensory loss [Not Recovered/Not Resolved]

NARRATIVE: CASE EVENT DATE: 20241220
